FAERS Safety Report 20137297 (Version 1)
Quarter: 2021Q4

REPORT INFORMATION
  Report Type: Spontaneous
  Country: JP (occurrence: JP)
  Receive Date: 20211201
  Receipt Date: 20211201
  Transmission Date: 20220303
  Serious: Yes (Hospitalization, Other)
  Sender: FDA-Public Use
  Company Number: JP-SANOFI-2019SA321097

PATIENT
  Age: 10 Month
  Sex: Male
  Weight: 7.9 kg

DRUGS (12)
  1. VIGABATRIN [Suspect]
     Active Substance: VIGABATRIN
     Indication: Infantile spasms
     Dosage: DAILY DOSE: 150 MG/M2, ACTUAL DOSE: 1250 MG, TWICE DAILY
     Route: 048
     Dates: start: 20191108, end: 20191120
  2. VIGABATRIN [Suspect]
     Active Substance: VIGABATRIN
     Dosage: 100 MG, BID
     Route: 048
     Dates: start: 20190904, end: 20190911
  3. VIGABATRIN [Suspect]
     Active Substance: VIGABATRIN
     Dosage: 200 MG, BID
     Route: 048
     Dates: start: 20190912, end: 20190918
  4. VIGABATRIN [Suspect]
     Active Substance: VIGABATRIN
     Dosage: 400 MG, BID
     Route: 048
     Dates: start: 20190919, end: 20190925
  5. VIGABATRIN [Suspect]
     Active Substance: VIGABATRIN
     Dosage: 600 MG, BID
     Route: 048
     Dates: start: 20190926, end: 20191107
  6. VIGABATRIN [Suspect]
     Active Substance: VIGABATRIN
     Dosage: 400 MG, BID
     Route: 048
     Dates: start: 20191121, end: 20191204
  7. VALPROATE SODIUM [Concomitant]
     Active Substance: VALPROATE SODIUM
     Indication: Infantile spasms
     Dosage: DAILY DOSE: 210 MG
     Route: 048
     Dates: start: 20190801
  8. LEVETIRACETAM [Concomitant]
     Active Substance: LEVETIRACETAM
     Indication: Infantile spasms
     Dosage: DAILY DOSE: 500 MG
     Route: 065
     Dates: start: 20191023, end: 20200116
  9. VALPROATE SODIUM [Concomitant]
     Active Substance: VALPROATE SODIUM
     Indication: Infantile spasms
     Dosage: DAILY DOSE: 160 MG
     Route: 048
  10. TOPIRAMATE [Concomitant]
     Active Substance: TOPIRAMATE
     Indication: Infantile spasms
     Dosage: DAILY DOSE: 45 MG
     Route: 048
     Dates: end: 20191031
  11. MAGNESIUM OXIDE [Concomitant]
     Active Substance: MAGNESIUM OXIDE
     Indication: Product used for unknown indication
     Dosage: DAILY DOSE: 0.3 G
     Route: 048
  12. NITRAZEPAM [Concomitant]
     Active Substance: NITRAZEPAM
     Indication: Infantile spasms
     Dosage: DAILY DOSE: 4 MG
     Route: 048
     Dates: end: 20190912

REACTIONS (4)
  - Pneumonia aspiration [Recovered/Resolved]
  - Hypoxia [Recovered/Resolved]
  - Decreased appetite [Recovered/Resolved]
  - Somnolence [Recovered/Resolved]

NARRATIVE: CASE EVENT DATE: 20190926
